FAERS Safety Report 18394391 (Version 1)
Quarter: 2020Q4

REPORT INFORMATION
  Report Type: Spontaneous
  Country: US (occurrence: US)
  Receive Date: 20201016
  Receipt Date: 20201016
  Transmission Date: 20210114
  Serious: No
  Sender: FDA-Public Use
  Company Number: US-TEVA-2020-US-1838913

PATIENT
  Age: 80 Year
  Sex: Female

DRUGS (1)
  1. BUDESONIDE. [Suspect]
     Active Substance: BUDESONIDE
     Indication: CHRONIC OBSTRUCTIVE PULMONARY DISEASE
     Dosage: DOSE: 1 VIAL TWICE A DAY
     Route: 065

REACTIONS (5)
  - Vertigo [Not Recovered/Not Resolved]
  - Visual impairment [Not Recovered/Not Resolved]
  - Balance disorder [Unknown]
  - Pruritus [Not Recovered/Not Resolved]
  - Asthenia [Not Recovered/Not Resolved]
